FAERS Safety Report 4717332-X (Version None)
Quarter: 2005Q3

REPORT INFORMATION
  Report Type: 
  Country: None (occurrence: None)
  Receive Date: 20050715
  Receipt Date: 20050625
  Transmission Date: 20060218
  Serious: Yes (Hospitalization)
  Sender: FDA-Public Use
  Company Number: CTI_0816_2005

PATIENT
  Age: 64 Year
  Sex: Male
  Weight: 127 kg

DRUGS (13)
  1. ZILEUTON [Suspect]
     Indication: NON-SMALL CELL LUNG CANCER
     Dosage: 600 MG QID PO
     Route: 048
     Dates: start: 20040728
  2. GEMCITABINE [Suspect]
     Indication: NON-SMALL CELL LUNG CANCER
     Dosage: 1000 MQ/SQM Q3WKS IV
     Route: 042
     Dates: start: 20040728
  3. CARBOPLATIN [Suspect]
     Indication: NON-SMALL CELL LUNG CANCER
     Dosage: 960 MG Q3WKS IV
     Route: 042
     Dates: start: 20040728
  4. ATENOLOL [Concomitant]
  5. COUMADIN [Concomitant]
  6. LIPITOR [Concomitant]
  7. TRUSOPT [Concomitant]
  8. AMARYL [Concomitant]
  9. HYDROCODONE BITARTRATE [Concomitant]
  10. AMIODARONE [Concomitant]
  11. ALPHAGAN [Concomitant]
  12. LORTAB [Concomitant]
  13. INSULIN /CZE/ [Concomitant]

REACTIONS (20)
  - ANAEMIA [None]
  - BLOOD UREA INCREASED [None]
  - COAGULOPATHY [None]
  - DEEP VEIN THROMBOSIS [None]
  - DIZZINESS [None]
  - DYSPNOEA [None]
  - EPISTAXIS [None]
  - GASTRITIS [None]
  - GASTROINTESTINAL HAEMORRHAGE [None]
  - HAEMATOCRIT DECREASED [None]
  - HAEMOGLOBIN DECREASED [None]
  - INTERNATIONAL NORMALISED RATIO INCREASED [None]
  - LYMPHOCYTE COUNT DECREASED [None]
  - MONOCYTE COUNT INCREASED [None]
  - OVERDOSE [None]
  - PALLOR [None]
  - PLATELET COUNT DECREASED [None]
  - PYREXIA [None]
  - RED BLOOD CELL COUNT DECREASED [None]
  - RED CELL DISTRIBUTION WIDTH INCREASED [None]
